FAERS Safety Report 7454989-7 (Version None)
Quarter: 2011Q2

REPORT INFORMATION
  Report Type: 
  Country: None (occurrence: None)
  Receive Date: 20110503
  Receipt Date: 20110422
  Transmission Date: 20111010
  Serious: Yes (Other)
  Sender: FDA-Public Use
  Company Number: US-NOVOPROD-327231

PATIENT
  Age: 58 Year
  Sex: Female

DRUGS (2)
  1. VICTOZA [Suspect]
     Indication: PRODUCT USED FOR UNKNOWN INDICATION
     Dosage: UNK
     Dates: start: 20110311, end: 20110406
  2. AMARYL [Concomitant]
     Indication: PRODUCT USED FOR UNKNOWN INDICATION
     Dosage: UNK
     Dates: start: 20101101

REACTIONS (6)
  - PAIN [None]
  - OESOPHAGEAL FOOD IMPACTION [None]
  - PANCREATITIS ACUTE [None]
  - WEIGHT DECREASED [None]
  - ERUCTATION [None]
  - DYSGEUSIA [None]
